FAERS Safety Report 8881539 (Version 1)
Quarter: 2012Q4

REPORT INFORMATION
  Report Type: 
  Country: FR (occurrence: FR)
  Receive Date: 20121101
  Receipt Date: 20121101
  Transmission Date: 20130627
  Serious: Yes (Other)
  Sender: FDA-Public Use
  Company Number: FR-ROCHE-1150446

PATIENT

DRUGS (1)
  1. CAPECITABINE [Suspect]
     Indication: HEAD AND NECK CANCER
     Route: 048

REACTIONS (5)
  - Thrombocytopenia [Unknown]
  - Palmar-plantar erythrodysaesthesia syndrome [Unknown]
  - Mucosal inflammation [Unknown]
  - Fatigue [Unknown]
  - Infection [Unknown]
